FAERS Safety Report 9697046 (Version 3)
Quarter: 2014Q1

REPORT INFORMATION
  Report Type: Report from Study
  Country: BR (occurrence: BR)
  Receive Date: 20131120
  Receipt Date: 20140110
  Transmission Date: 20141002
  Serious: Yes (Hospitalization)
  Sender: FDA-Public Use
  Company Number: BR-ROCHE-1006483

PATIENT
  Sex: Female
  Weight: 65 kg

DRUGS (5)
  1. MABTHERA [Suspect]
     Indication: RHEUMATOID ARTHRITIS
     Route: 042
     Dates: start: 200908
  2. ARAVA [Concomitant]
     Route: 065
  3. ROHYPNOL [Concomitant]
     Route: 065
  4. PURAN T4 [Concomitant]
     Route: 065
  5. FLUOXETINE [Concomitant]
     Route: 065

REACTIONS (3)
  - Gallbladder disorder [Recovered/Resolved]
  - Hypertension [Recovered/Resolved]
  - Weight decreased [Unknown]
